FAERS Safety Report 23358590 (Version 1)
Quarter: 2024Q1

REPORT INFORMATION
  Report Type: Spontaneous
  Country: None (occurrence: US)
  Receive Date: 20240102
  Receipt Date: 20240102
  Transmission Date: 20240410
  Serious: No
  Sender: FDA-Public Use
  Company Number: US-Mission Pharmacal Company-2150062

PATIENT
  Age: 42 Year
  Sex: Male

DRUGS (6)
  1. THIOLA EC [Suspect]
     Active Substance: TIOPRONIN
     Indication: Ureterolithiasis
     Route: 048
     Dates: start: 20190811
  2. CAPTOPRIL [Concomitant]
     Active Substance: CAPTOPRIL
  3. CLONAZEPAM [Concomitant]
     Active Substance: CLONAZEPAM
  4. POTASSIUM CITRATE [Concomitant]
     Active Substance: POTASSIUM CITRATE
     Route: 048
  5. SIMVASTATIN [Concomitant]
     Active Substance: SIMVASTATIN
  6. ZOLOFT [Concomitant]
     Active Substance: SERTRALINE HYDROCHLORIDE

REACTIONS (1)
  - Drug ineffective [Unknown]
